FAERS Safety Report 6241109-X (Version None)
Quarter: 2009Q2

REPORT INFORMATION
  Report Type: 
  Country: None (occurrence: None)
  Receive Date: 20090619
  Receipt Date: 20090619
  Transmission Date: 20091009
  Serious: No
  Sender: FDA-Public Use
  Company Number: None

PATIENT
  Age: 59 Year
  Sex: Female
  Weight: 86.637 kg

DRUGS (1)
  1. JANUVIA [Suspect]
     Indication: DIABETES MELLITUS
     Dosage: 100MG DAILY PO
     Route: 048
     Dates: start: 20090612, end: 20090616

REACTIONS (6)
  - HEADACHE [None]
  - LACRIMATION INCREASED [None]
  - NASAL CONGESTION [None]
  - PYREXIA [None]
  - RHINORRHOEA [None]
  - SNEEZING [None]
